FAERS Safety Report 9293529 (Version 2)
Quarter: 2013Q2

REPORT INFORMATION
  Report Type: Spontaneous
  Country: US (occurrence: US)
  Receive Date: 20130516
  Receipt Date: 20130522
  Transmission Date: 20140414
  Serious: Yes (Death)
  Sender: FDA-Public Use
  Company Number: US-GILEAD-2013-0075250

PATIENT
  Sex: Male

DRUGS (2)
  1. LETAIRIS [Suspect]
     Indication: PULMONARY ARTERIAL HYPERTENSION
     Dosage: 5 MG, QD
     Route: 048
     Dates: start: 20130227
  2. ADCIRCA [Concomitant]
     Indication: PULMONARY HYPERTENSION
     Dates: start: 20130227, end: 20130512

REACTIONS (1)
  - Chronic obstructive pulmonary disease [Fatal]
